FAERS Safety Report 14604307 (Version 1)
Quarter: 2018Q1

REPORT INFORMATION
  Report Type: Spontaneous
  Country: US (occurrence: US)
  Receive Date: 20180306
  Receipt Date: 20180306
  Transmission Date: 20180509
  Serious: Yes (Other)
  Sender: FDA-Public Use
  Company Number: US-X-GEN PHARMACEUTICALS, INC-2043058

PATIENT
  Age: 29 Year
  Sex: Female
  Weight: 59.09 kg

DRUGS (1)
  1. NEOMYCIN SULFATE. [Suspect]
     Active Substance: NEOMYCIN SULFATE
     Route: 048
     Dates: start: 20160301, end: 20160310

REACTIONS (3)
  - Hepatic enzyme increased [None]
  - Tremor [Recovered/Resolved]
  - Muscle twitching [None]
